FAERS Safety Report 17471963 (Version 1)
Quarter: 2020Q1

REPORT INFORMATION
  Report Type: Spontaneous
  Country: CA (occurrence: CA)
  Receive Date: 20200228
  Receipt Date: 20200228
  Transmission Date: 20200409
  Serious: Yes (Hospitalization)
  Sender: FDA-Public Use
  Company Number: CA-TEVA-2020-CA-1190514

PATIENT
  Age: 80 Year
  Sex: Male
  Weight: 74 kg

DRUGS (25)
  1. ACETAMINOPHEN. [Concomitant]
     Active Substance: ACETAMINOPHEN
     Route: 048
  2. COLACE [Concomitant]
     Active Substance: DOCUSATE SODIUM
     Route: 065
  3. FOSAMAX [Concomitant]
     Active Substance: ALENDRONATE SODIUM
     Route: 065
  4. METHYLPREDNISOLONE. [Concomitant]
     Active Substance: METHYLPREDNISOLONE
     Route: 011
  5. RISEDRONATE SODIUM. [Concomitant]
     Active Substance: RISEDRONATE SODIUM
     Route: 065
  6. DIPHENHYDRAMINE HYDROCHLORIDE. [Concomitant]
     Active Substance: DIPHENHYDRAMINE HYDROCHLORIDE
     Route: 048
  7. PREDNISONE. [Concomitant]
     Active Substance: PREDNISONE
     Route: 065
  8. ACETAMINOPHEN/CAFFEINE/CODEINE [Suspect]
     Active Substance: ACETAMINOPHEN\CAFFEINE\CODEINE
     Indication: PRODUCT USED FOR UNKNOWN INDICATION
     Route: 065
  9. RITUXIMAB. [Suspect]
     Active Substance: RITUXIMAB
     Indication: RHEUMATOID ARTHRITIS
     Route: 042
  10. PROSCAR [Concomitant]
     Active Substance: FINASTERIDE
     Route: 065
  11. CODEINE [Concomitant]
     Active Substance: CODEINE
     Route: 065
  12. GABAPENTIN. [Concomitant]
     Active Substance: GABAPENTIN
  13. METHYLPREDNISOLONE. [Concomitant]
     Active Substance: METHYLPREDNISOLONE
     Route: 042
  14. LEVOFLOXACIN. [Suspect]
     Active Substance: LEVOFLOXACIN
     Indication: PRODUCT USED FOR UNKNOWN INDICATION
     Route: 065
  15. ACETAMINOPHEN. [Concomitant]
     Active Substance: ACETAMINOPHEN
     Route: 048
  16. PANTOPRAZOLE SODIUM. [Concomitant]
     Active Substance: PANTOPRAZOLE SODIUM
  17. METHOTREXATE. [Suspect]
     Active Substance: METHOTREXATE
     Indication: PRODUCT USED FOR UNKNOWN INDICATION
     Route: 065
  18. INSULIN [Concomitant]
     Active Substance: INSULIN NOS
  19. ISOPHANE INSULIN [Concomitant]
     Active Substance: INSULIN NOS
  20. RITUXIMAB. [Suspect]
     Active Substance: RITUXIMAB
     Route: 042
  21. DIPHENHYDRAMINE HYDROCHLORIDE. [Concomitant]
     Active Substance: DIPHENHYDRAMINE HYDROCHLORIDE
     Route: 048
  22. ERGOCALCIFEROL. [Concomitant]
     Active Substance: ERGOCALCIFEROL
     Route: 065
  23. LASIX [Concomitant]
     Active Substance: FUROSEMIDE
  24. SENOKOT [Concomitant]
     Active Substance: SENNOSIDES
  25. TAMSULOSIN HYDROCHLORIDE. [Concomitant]
     Active Substance: TAMSULOSIN HYDROCHLORIDE

REACTIONS (27)
  - Dizziness [Not Recovered/Not Resolved]
  - Skin atrophy [Not Recovered/Not Resolved]
  - Ankle fracture [Not Recovered/Not Resolved]
  - Cataract [Not Recovered/Not Resolved]
  - Liver injury [Not Recovered/Not Resolved]
  - Localised infection [Not Recovered/Not Resolved]
  - Pain in extremity [Not Recovered/Not Resolved]
  - Rheumatoid arthritis [Not Recovered/Not Resolved]
  - Phlebosclerosis [Not Recovered/Not Resolved]
  - Poor venous access [Not Recovered/Not Resolved]
  - Body temperature decreased [Not Recovered/Not Resolved]
  - Pain [Not Recovered/Not Resolved]
  - Vein rupture [Not Recovered/Not Resolved]
  - Blood pressure fluctuation [Not Recovered/Not Resolved]
  - Hepatotoxicity [Not Recovered/Not Resolved]
  - Pneumonia [Not Recovered/Not Resolved]
  - Blood pressure increased [Not Recovered/Not Resolved]
  - Mental disorder [Not Recovered/Not Resolved]
  - Skin fragility [Not Recovered/Not Resolved]
  - Heart rate decreased [Not Recovered/Not Resolved]
  - Infusion related reaction [Not Recovered/Not Resolved]
  - Arthralgia [Not Recovered/Not Resolved]
  - Blood glucose increased [Not Recovered/Not Resolved]
  - Drug hypersensitivity [Not Recovered/Not Resolved]
  - Fluid retention [Not Recovered/Not Resolved]
  - Foot deformity [Not Recovered/Not Resolved]
  - Osteomyelitis [Not Recovered/Not Resolved]
